FAERS Safety Report 4607913-6 (Version None)
Quarter: 2005Q1

REPORT INFORMATION
  Report Type: 
  Country: None (occurrence: None)
  Receive Date: 20050310
  Receipt Date: 20050224
  Transmission Date: 20050727
  Serious: Yes (Other)
  Sender: FDA-Public Use
  Company Number: 200411191BVD

PATIENT
  Age: 61 Year
  Sex: Female

DRUGS (6)
  1. AVELOX [Suspect]
     Indication: STAPHYLOCOCCAL INFECTION
     Dosage: SEE IMAGE
     Route: 042
     Dates: start: 20040922, end: 20040925
  2. AVELOX [Suspect]
     Indication: STAPHYLOCOCCAL INFECTION
     Dosage: SEE IMAGE
     Route: 042
     Dates: start: 20040926, end: 20040927
  3. PANTOPRAZOLE SODIUM [Concomitant]
  4. NEURONTIN [Concomitant]
  5. MORPHINE [Concomitant]
  6. NOVALGIN [Concomitant]

REACTIONS (7)
  - ACTIVATED PARTIAL THROMBOPLASTIN TIME PROLONGED [None]
  - CALCULUS URETERIC [None]
  - EOSINOPHILIA [None]
  - HYPERCALCAEMIA [None]
  - LIPASE INCREASED [None]
  - THROMBIN TIME PROLONGED [None]
  - URETERIC OBSTRUCTION [None]
